FAERS Safety Report 17649831 (Version 4)
Quarter: 2020Q4

REPORT INFORMATION
  Report Type: Spontaneous
  Country: US (occurrence: US)
  Receive Date: 20200409
  Receipt Date: 20201207
  Transmission Date: 20210113
  Serious: No
  Sender: FDA-Public Use
  Company Number: US-PFIZER INC-2020144243

PATIENT
  Age: 63 Year
  Sex: Female

DRUGS (1)
  1. XELJANZ [Suspect]
     Active Substance: TOFACITINIB CITRATE
     Indication: PSORIATIC ARTHROPATHY
     Dosage: 5 MG, 2X/DAY
     Route: 048
     Dates: start: 201911

REACTIONS (7)
  - Pain in extremity [Unknown]
  - Product dose omission issue [Unknown]
  - Abdominal pain lower [Unknown]
  - Dizziness [Unknown]
  - Erythema [Unknown]
  - Pain [Unknown]
  - Haematuria [Unknown]
